FAERS Safety Report 10436363 (Version 1)
Quarter: 2014Q3

REPORT INFORMATION
  Report Type: Spontaneous
  Country: US (occurrence: None)
  Receive Date: 20140904
  Receipt Date: 20140904
  Transmission Date: 20150326
  Serious: Yes (Hospitalization, Other)
  Sender: FDA-Public Use
  Company Number: 2014AP004246

PATIENT
  Age: 52 Year
  Sex: Female
  Weight: 120.1 kg

DRUGS (3)
  1. TRACLEER [Concomitant]
     Active Substance: BOSENTAN\BOSENTAN MONOHYDRATE
  2. AZELASTINE HYDROCHLORIDE. [Suspect]
     Active Substance: AZELASTINE HYDROCHLORIDE
     Indication: HYPERSENSITIVITY
     Dosage: UNK, NASAL
     Route: 045
     Dates: start: 2014
  3. REMODULIN [Suspect]
     Active Substance: TREPROSTINIL
     Indication: PULMONARY ARTERIAL HYPERTENSION
     Route: 041

REACTIONS (19)
  - Product taste abnormal [None]
  - Cor pulmonale chronic [None]
  - Headache [None]
  - Device occlusion [None]
  - Flushing [None]
  - Nausea [None]
  - Diarrhoea [None]
  - Vomiting [None]
  - Infusion site pain [None]
  - Infusion site swelling [None]
  - Medication error [None]
  - Accidental overdose [None]
  - Palpitations [None]
  - Anxiety [None]
  - Infusion site erythema [None]
  - Injection site pain [None]
  - Infusion site irritation [None]
  - Incorrect dose administered [None]
  - Drug dose omission [None]

NARRATIVE: CASE EVENT DATE: 201401
